FAERS Safety Report 18379406 (Version 1)
Quarter: 2020Q4

REPORT INFORMATION
  Report Type: Spontaneous
  Country: PE (occurrence: PE)
  Receive Date: 20201013
  Receipt Date: 20201013
  Transmission Date: 20210114
  Serious: Yes (Other)
  Sender: FDA-Public Use
  Company Number: PE-ASTRAZENECA-2020SF31153

PATIENT

DRUGS (1)
  1. DAPAGLIFOZIN [Suspect]
     Active Substance: DAPAGLIFLOZIN
     Dosage: 10.0MG UNKNOWN
     Route: 048

REACTIONS (1)
  - Pancreatic carcinoma [Unknown]
